FAERS Safety Report 4277862-4 (Version None)
Quarter: 2004Q1

REPORT INFORMATION
  Report Type: 
  Country: None (occurrence: None)
  Receive Date: 20040121
  Receipt Date: 20040113
  Transmission Date: 20041129
  Serious: Yes (Hospitalization)
  Sender: FDA-Public Use
  Company Number: 2003125039

PATIENT
  Age: 54 Year
  Sex: Female

DRUGS (12)
  1. SULPERAZON (CEFOPERAZONE, SULBACTAM) [Suspect]
     Indication: PYREXIA
     Dosage: 2 GRAM, INTRAVENOUS
     Route: 042
     Dates: start: 20031206, end: 20031210
  2. LANSOPRAZOLE [Suspect]
     Indication: ILL-DEFINED DISORDER
     Dosage: 30 MG, ORAL
     Route: 048
     Dates: start: 20031207, end: 20031210
  3. FAMOTIDINE [Suspect]
     Indication: GASTRIC ULCER
     Dosage: (BID), INTRAVENOUS
     Route: 042
     Dates: start: 20031205, end: 20031206
  4. RED BLOOD CELLS [Concomitant]
  5. SOLITA T (ELECTROLYTES NOS) [Concomitant]
  6. SOLITA-T3 INJECTION (SODIUM LACTATE, POTASSIUM CHLORIDE, SODIUM CHLORI [Concomitant]
  7. CARBAZOCHROME SODIUM SULFONATE (CARBAZOCHROME SODIUM SULFONATE) [Concomitant]
  8. HALOPERIDOL [Concomitant]
  9. BIPERIDEN HYDROCHLORIDE TAB [Concomitant]
  10. METAMIZOLE SODIUM (METAMIZOLE SODIUM) [Concomitant]
  11. AMINOFLUID (GLUCOSE, AMINO ACIDS NOS, ELECTROLYTES NOS) [Concomitant]
  12. PARACETAMOL (PARACETAMOL) [Concomitant]

REACTIONS (1)
  - PLATELET COUNT DECREASED [None]
